FAERS Safety Report 5448935-5 (Version None)
Quarter: 2007Q3

REPORT INFORMATION
  Report Type: 
  Country: None (occurrence: None)
  Receive Date: 20070906
  Receipt Date: 20070827
  Transmission Date: 20080115
  Serious: Yes (Hospitalization)
  Sender: FDA-Public Use
  Company Number: 2007BI018248

PATIENT
  Sex: Female

DRUGS (1)
  1. AVONEX [Suspect]
     Dosage: IM
     Route: 030

REACTIONS (3)
  - FATIGUE [None]
  - OROPHARYNGEAL SPASM [None]
  - VISION BLURRED [None]
